FAERS Safety Report 7603783-2 (Version None)
Quarter: 2011Q3

REPORT INFORMATION
  Report Type: 
  Country: None (occurrence: None)
  Receive Date: 20110712
  Receipt Date: 20110610
  Transmission Date: 20111222
  Serious: Yes (Hospitalization)
  Sender: FDA-Public Use
  Company Number: US-GLAXOSMITHKLINE-A0934159A

PATIENT
  Age: 53 Year
  Sex: Female

DRUGS (1)
  1. AVANDIA [Suspect]
     Indication: DIABETES MELLITUS
     Dosage: 4MG PER DAY
     Route: 048
     Dates: start: 19990101, end: 20110101

REACTIONS (6)
  - CEREBROVASCULAR ACCIDENT [None]
  - PHYSICAL DISABILITY [None]
  - PAIN [None]
  - HEART RATE IRREGULAR [None]
  - HYPOAESTHESIA [None]
  - ARTHRALGIA [None]
